FAERS Safety Report 8406632-8 (Version None)
Quarter: 2012Q2

REPORT INFORMATION
  Report Type: 
  Country: None (occurrence: None)
  Receive Date: 20120604
  Receipt Date: 20120528
  Transmission Date: 20120825
  Serious: Yes (Other)
  Sender: FDA-Public Use
  Company Number: CA-UCBSA-058267

PATIENT
  Sex: Female

DRUGS (2)
  1. CIMZIA [Suspect]
  2. CIMZIA [Suspect]
     Indication: RHEUMATOID ARTHRITIS
     Route: 058
     Dates: start: 20110606

REACTIONS (2)
  - CAESAREAN SECTION [None]
  - PREGNANCY [None]
